FAERS Safety Report 7835333-X (Version None)
Quarter: 2011Q4

REPORT INFORMATION
  Report Type: 
  Country: None (occurrence: None)
  Receive Date: 20111024
  Receipt Date: 20111013
  Transmission Date: 20120403
  Serious: Yes (Other)
  Sender: FDA-Public Use
  Company Number: US-ASTRAZENECA-2011SE58820

PATIENT
  Age: 49 Year
  Sex: Male

DRUGS (1)
  1. NEXIUM [Suspect]
     Route: 048

REACTIONS (6)
  - INJURY [None]
  - LIMB INJURY [None]
  - CHEST PAIN [None]
  - THROAT IRRITATION [None]
  - DISCOMFORT [None]
  - DYSPHAGIA [None]
